FAERS Safety Report 5168480-4 (Version None)
Quarter: 2006Q4

REPORT INFORMATION
  Report Type: 
  Country: None (occurrence: None)
  Receive Date: 20061201
  Receipt Date: 20060727
  Transmission Date: 20070319
  Serious: No
  Sender: FDA-Public Use
  Company Number: 2006084424

PATIENT

DRUGS (1)
  1. SILDENAFIL CITRATE [Suspect]
     Indication: PULMONARY HYPERTENSION
     Dosage: ORAL
     Route: 048

REACTIONS (4)
  - GLOMERULONEPHRITIS MEMBRANOUS [None]
  - HAEMATURIA [None]
  - OFF LABEL USE [None]
  - TUBULOINTERSTITIAL NEPHRITIS [None]
